FAERS Safety Report 21422647 (Version 3)
Quarter: 2023Q2

REPORT INFORMATION
  Report Type: Spontaneous
  Country: US (occurrence: US)
  Receive Date: 20221007
  Receipt Date: 20230615
  Transmission Date: 20230722
  Serious: No
  Sender: FDA-Public Use
  Company Number: US-PFIZER INC-PV202200025375

PATIENT
  Age: 78 Year
  Sex: Female

DRUGS (1)
  1. XELJANZ XR [Suspect]
     Active Substance: TOFACITINIB CITRATE
     Dosage: UNK

REACTIONS (7)
  - Product dose omission issue [Unknown]
  - Joint stiffness [Unknown]
  - Sensitivity to weather change [Unknown]
  - Pain [Unknown]
  - Swelling [Unknown]
  - Epistaxis [Unknown]
  - Condition aggravated [Unknown]
